FAERS Safety Report 7269723-3 (Version None)
Quarter: 2011Q1

REPORT INFORMATION
  Report Type: 
  Country: None (occurrence: None)
  Receive Date: 20110202
  Receipt Date: 20110131
  Transmission Date: 20110831
  Serious: Yes (Death, Other)
  Sender: FDA-Public Use
  Company Number: MY-PFIZER INC-2011011316

PATIENT
  Age: 34 Year
  Sex: Female

DRUGS (18)
  1. METHYLDOPA [Concomitant]
     Dosage: UNK
     Route: 048
     Dates: start: 20100405
  2. VANCOMYCIN [Concomitant]
     Dosage: UNK
     Route: 042
     Dates: start: 20100418
  3. IMMUNOGLOBULINS [Concomitant]
     Dosage: UNK
     Route: 042
     Dates: start: 20100504
  4. TYGACIL [Suspect]
     Dosage: 50 MG, 2X/DAY
     Route: 042
     Dates: start: 20100413, end: 20100421
  5. FLUCONAZOLE [Concomitant]
     Dosage: UNK
     Route: 042
     Dates: start: 20100424
  6. MEROPENEM [Concomitant]
     Dosage: UNK
     Route: 042
     Dates: start: 20100407
  7. TYGACIL [Suspect]
     Indication: ACINETOBACTER INFECTION
     Dosage: 100 MG, SINGLE
     Route: 042
     Dates: start: 20100412, end: 20100412
  8. CEFOPERAZONE [Concomitant]
     Dosage: UNK
     Route: 042
     Dates: start: 20100403
  9. METRONIDAZOLE [Concomitant]
     Dosage: UNK
     Route: 042
     Dates: start: 20100403
  10. LINEZOLID [Concomitant]
     Dosage: UNK
     Route: 042
     Dates: start: 20100407
  11. ENOXAPARIN [Concomitant]
     Dosage: UNK
     Route: 058
     Dates: start: 20100412
  12. OSELTAMIVIR [Concomitant]
     Dosage: UNK
     Dates: start: 20100404
  13. PIPERACILLIN AND TAZOBACTAM [Concomitant]
     Dosage: UNK
     Route: 042
     Dates: start: 20100421
  14. CEFEPIME [Concomitant]
     Dosage: UNK
     Route: 042
     Dates: start: 20100501
  15. AZITHROMYCIN [Concomitant]
     Dosage: UNK
     Route: 042
     Dates: start: 20100404
  16. CIPROFLOXACIN [Concomitant]
     Dosage: UNK
     Route: 042
     Dates: start: 20100421
  17. CEFEPIME [Concomitant]
     Dosage: UNK
     Route: 042
     Dates: start: 20100403
  18. IMIPENEM AND CILASTATIN SODIUM [Concomitant]
     Dosage: UNK
     Route: 042
     Dates: start: 20100504

REACTIONS (4)
  - WHITE BLOOD CELL COUNT DECREASED [None]
  - PLATELET COUNT DECREASED [None]
  - MULTI-ORGAN FAILURE [None]
  - INFECTION [None]
